FAERS Safety Report 25947762 (Version 1)
Quarter: 2025Q4

REPORT INFORMATION
  Report Type: Spontaneous
  Country: US (occurrence: US)
  Receive Date: 20251022
  Receipt Date: 20251022
  Transmission Date: 20260118
  Serious: No
  Sender: REGENERON
  Company Number: US-REGENERON PHARMACEUTICALS, INC.-2024-156789

PATIENT
  Sex: Female

DRUGS (2)
  1. LIBTAYO [Suspect]
     Active Substance: CEMIPLIMAB-RWLC
     Indication: Non-small cell lung cancer
     Dosage: FIRST INFUSION,LAST 6-8 WEEKS
     Route: 065
     Dates: start: 2024
  2. LIBTAYO [Suspect]
     Active Substance: CEMIPLIMAB-RWLC
     Dosage: SECOND INFUSION(DOSE)

REACTIONS (2)
  - Breast swelling [Unknown]
  - Blood thyroid stimulating hormone increased [Unknown]
